FAERS Safety Report 4647628-1 (Version None)
Quarter: 2005Q2

REPORT INFORMATION
  Report Type: 
  Country: None (occurrence: None)
  Receive Date: 20050426
  Receipt Date: 20050413
  Transmission Date: 20051028
  Serious: Yes (Hospitalization)
  Sender: FDA-Public Use
  Company Number: MK200504-0173-1

PATIENT
  Age: 39 Year
  Sex: Male

DRUGS (1)
  1. BAROSPERSE ENEMA KT 454GM/16OZ BARIUM SULFATE [Suspect]
     Indication: BARIUM ENEMA
     Dosage: ONE TIME, PR
     Route: 054

REACTIONS (10)
  - ABDOMINAL MASS [None]
  - APPENDICITIS [None]
  - BODY TEMPERATURE INCREASED [None]
  - DIVERTICULITIS [None]
  - GASTROINTESTINAL OEDEMA [None]
  - INFLAMMATION [None]
  - INTESTINAL GANGRENE [None]
  - INTESTINAL PERFORATION [None]
  - PROCEDURAL COMPLICATION [None]
  - TENDERNESS [None]
